FAERS Safety Report 5864123-2 (Version None)
Quarter: 2008Q3

REPORT INFORMATION
  Report Type: 
  Country: None (occurrence: None)
  Receive Date: 20080829
  Receipt Date: 20080820
  Transmission Date: 20090109
  Serious: Yes (Other)
  Sender: FDA-Public Use
  Company Number: GB-AMGEN-US300867

PATIENT
  Age: 10 Year
  Sex: Male

DRUGS (3)
  1. ENBREL [Suspect]
     Indication: POLYARTHRITIS
     Route: 058
     Dates: start: 20030917
  2. METHOTREXATE [Suspect]
     Route: 058
     Dates: end: 20061108
  3. METHOTREXATE [Suspect]
     Route: 058

REACTIONS (1)
  - MENTAL DISORDER [None]
